FAERS Safety Report 8558430-2 (Version None)
Quarter: 2012Q3

REPORT INFORMATION
  Report Type: 
  Country: None (occurrence: None)
  Receive Date: 20120801
  Receipt Date: 20120731
  Transmission Date: 20120928
  Serious: Yes (Life-Threatening)
  Sender: FDA-Public Use
  Company Number: PHHY2012IT065752

PATIENT
  Sex: Male

DRUGS (6)
  1. LANSOPRAZOLE [Suspect]
     Indication: PROPHYLAXIS
     Dosage: 15 MG DAILY
     Route: 048
     Dates: start: 20010101, end: 20110617
  2. ASPIRIN [Concomitant]
     Dosage: 100 MG
  3. MEDROL [Concomitant]
     Dosage: 16 MG
  4. METFORMIN HYDROCHLORIDE [Suspect]
     Indication: DIABETES MELLITUS
     Dosage: 1 G DAILY
     Route: 048
     Dates: start: 20080101, end: 20110617
  5. DICLOFENAC SODIUM [Suspect]
     Indication: OSTEOARTHRITIS
     Dosage: 1 DF,
     Route: 049
     Dates: start: 20090101, end: 20110617
  6. GLIMEPIRIDE [Suspect]
     Indication: DIABETES MELLITUS
     Dosage: 2 MG DAILY
     Route: 048
     Dates: start: 20090101, end: 20110617

REACTIONS (1)
  - NEUTROPENIA [None]
